FAERS Safety Report 25006519 (Version 2)
Quarter: 2025Q1

REPORT INFORMATION
  Report Type: Spontaneous
  Country: US (occurrence: US)
  Receive Date: 20250224
  Receipt Date: 20250331
  Transmission Date: 20250409
  Serious: No
  Sender: AMGEN
  Company Number: US-AMGEN-USASP2025035086

PATIENT
  Age: 75 Year
  Sex: Male

DRUGS (2)
  1. KRYSTEXXA [Suspect]
     Active Substance: PEGLOTICASE
     Indication: Gouty tophus
     Dosage: UNK UNK, Q2WK (EVERY TWO WEEKS)
     Route: 040
     Dates: start: 20250204
  2. KRYSTEXXA [Suspect]
     Active Substance: PEGLOTICASE
     Dosage: UNK UNK, Q2WK (EVERY TWO WEEKS)
     Route: 040
     Dates: start: 20250218

REACTIONS (3)
  - Fatigue [Unknown]
  - Sinus disorder [Unknown]
  - Pain [Unknown]

NARRATIVE: CASE EVENT DATE: 20250101
